FAERS Safety Report 15735805 (Version 2)
Quarter: 2019Q1

REPORT INFORMATION
  Report Type: Spontaneous
  Country: HK (occurrence: HK)
  Receive Date: 20181218
  Receipt Date: 20190301
  Transmission Date: 20190417
  Serious: Yes (Other)
  Sender: FDA-Public Use
  Company Number: HK-GUERBET-HK-20180008

PATIENT
  Age: 60 Year
  Sex: Male

DRUGS (14)
  1. LIPIODOL [Suspect]
     Active Substance: ETHIODIZED OIL
     Indication: TRANSCATHETER ARTERIAL CHEMOEMBOLISATION
     Route: 013
     Dates: start: 201801, end: 201801
  2. LIPIODOL [Suspect]
     Active Substance: ETHIODIZED OIL
     Indication: TRANSCATHETER ARTERIAL CHEMOEMBOLISATION
     Route: 013
     Dates: start: 201805, end: 201805
  3. CISPLATIN. [Concomitant]
     Active Substance: CISPLATIN
     Indication: TRANSCATHETER ARTERIAL CHEMOEMBOLISATION
     Route: 013
     Dates: start: 201712, end: 201712
  4. CISPLATIN. [Concomitant]
     Active Substance: CISPLATIN
     Indication: TRANSCATHETER ARTERIAL CHEMOEMBOLISATION
     Route: 013
     Dates: start: 201801, end: 201801
  5. CISPLATIN. [Concomitant]
     Active Substance: CISPLATIN
     Indication: TRANSCATHETER ARTERIAL CHEMOEMBOLISATION
     Route: 013
     Dates: start: 201804, end: 201804
  6. LIPIODOL [Suspect]
     Active Substance: ETHIODIZED OIL
     Indication: TRANSCATHETER ARTERIAL CHEMOEMBOLISATION
     Route: 013
     Dates: start: 201807, end: 201807
  7. LIPIODOL [Suspect]
     Active Substance: ETHIODIZED OIL
     Indication: TRANSCATHETER ARTERIAL CHEMOEMBOLISATION
     Route: 013
     Dates: start: 201802, end: 201802
  8. CISPLATIN. [Concomitant]
     Active Substance: CISPLATIN
     Indication: TRANSCATHETER ARTERIAL CHEMOEMBOLISATION
     Route: 013
     Dates: start: 201807, end: 201807
  9. LIPIODOL [Suspect]
     Active Substance: ETHIODIZED OIL
     Indication: TRANSCATHETER ARTERIAL CHEMOEMBOLISATION
     Route: 013
     Dates: start: 201804, end: 201804
  10. CISPLATIN. [Concomitant]
     Active Substance: CISPLATIN
     Indication: TRANSCATHETER ARTERIAL CHEMOEMBOLISATION
     Route: 013
     Dates: start: 201802, end: 201802
  11. LIPIODOL [Suspect]
     Active Substance: ETHIODIZED OIL
     Indication: TRANSCATHETER ARTERIAL CHEMOEMBOLISATION
     Route: 013
     Dates: start: 201712, end: 201712
  12. LIPIODOL [Suspect]
     Active Substance: ETHIODIZED OIL
     Indication: TRANSCATHETER ARTERIAL CHEMOEMBOLISATION
     Route: 013
     Dates: start: 201809, end: 201809
  13. CISPLATIN. [Concomitant]
     Active Substance: CISPLATIN
     Indication: TRANSCATHETER ARTERIAL CHEMOEMBOLISATION
     Route: 013
     Dates: start: 201805, end: 201805
  14. CISPLATIN. [Concomitant]
     Active Substance: CISPLATIN
     Indication: TRANSCATHETER ARTERIAL CHEMOEMBOLISATION
     Route: 013
     Dates: start: 201809, end: 201809

REACTIONS (4)
  - Overdose [Unknown]
  - Ischaemic stroke [Recovered/Resolved]
  - Alpha 1 foetoprotein increased [Unknown]
  - Vasodilatation [Unknown]

NARRATIVE: CASE EVENT DATE: 2018
